FAERS Safety Report 18011326 (Version 2)
Quarter: 2021Q2

REPORT INFORMATION
  Report Type: Spontaneous
  Country: CA (occurrence: CA)
  Receive Date: 20200712
  Receipt Date: 20210628
  Transmission Date: 20210717
  Serious: Yes (Hospitalization)
  Sender: FDA-Public Use
  Company Number: CA-TEVA-2020-CA-1798289

PATIENT
  Sex: Female

DRUGS (8)
  1. VINCRISTINE SULFATE INJECTION USP [Suspect]
     Active Substance: VINCRISTINE SULFATE
     Route: 065
  2. ACETAMINOPHEN. [Concomitant]
     Active Substance: ACETAMINOPHEN
  3. ONDANSETRON [Concomitant]
     Active Substance: ONDANSETRON
  4. NASONEX [Concomitant]
     Active Substance: MOMETASONE FUROATE
  5. PAROEX [Concomitant]
     Active Substance: CHLORHEXIDINE GLUCONATE
  6. VENTOLINE [Concomitant]
     Active Substance: ALBUTEROL
  7. ALVESCO [Concomitant]
     Active Substance: CICLESONIDE
  8. VITAMIN D [Concomitant]
     Active Substance: VITAMIN D NOS

REACTIONS (1)
  - Febrile neutropenia [Recovered/Resolved]
